FAERS Safety Report 8532023-5 (Version None)
Quarter: 2012Q3

REPORT INFORMATION
  Report Type: 
  Country: None (occurrence: None)
  Receive Date: 20120723
  Receipt Date: 20120712
  Transmission Date: 20120928
  Serious: Yes (Other)
  Sender: FDA-Public Use
  Company Number: US-JNJFOC-20120708236

PATIENT
  Age: 63 Year
  Sex: Female
  Weight: 85.26 kg

DRUGS (14)
  1. IBUPROFEN [Suspect]
     Indication: ARTHRITIS
     Route: 065
  2. ADVIL [Suspect]
     Route: 065
  3. VERAPAMIL [Concomitant]
     Indication: HYPERTENSION
     Route: 065
  4. TYLENOL [Suspect]
     Route: 065
  5. ADVIL [Suspect]
     Indication: BACK DISORDER
     Route: 065
  6. SINGULAIR [Concomitant]
     Indication: ASTHMA
     Route: 065
  7. IBUPROFEN [Suspect]
     Indication: BACK DISORDER
     Route: 065
  8. IBUPROFEN [Suspect]
     Route: 065
     Dates: start: 20120101, end: 20120101
  9. TYLENOL [Suspect]
     Indication: ARTHRITIS
     Route: 065
  10. FOSAMAX [Concomitant]
     Indication: OSTEOPENIA
     Dosage: UNSPECIFIED DOSE
     Route: 065
  11. ADVIL [Suspect]
     Route: 065
  12. ADVIL [Suspect]
     Indication: ARTHRITIS
     Route: 065
  13. LOSARTAN POTASSIUM [Concomitant]
     Indication: HYPERTENSION
     Route: 065
  14. IBUPROFEN [Suspect]
     Route: 065
     Dates: start: 20120101, end: 20120101

REACTIONS (8)
  - SOMNOLENCE [None]
  - BLOOD CALCIUM INCREASED [None]
  - POOR QUALITY DRUG ADMINISTERED [None]
  - DRUG INEFFECTIVE [None]
  - ABDOMINAL PAIN UPPER [None]
  - BACK DISORDER [None]
  - DIARRHOEA [None]
  - TABLET PHYSICAL ISSUE [None]
